FAERS Safety Report 4811084-0 (Version None)
Quarter: 2005Q4

REPORT INFORMATION
  Report Type: 
  Country: None (occurrence: None)
  Receive Date: 20051025
  Receipt Date: 20051017
  Transmission Date: 20060501
  Serious: Yes (Hospitalization, Other)
  Sender: FDA-Public Use
  Company Number: TPA2005A01270

PATIENT
  Age: 55 Year
  Sex: Male
  Weight: 99.7913 kg

DRUGS (6)
  1. ACTOS [Suspect]
     Indication: BLOOD CHOLESTEROL DECREASED
     Dosage: PER ORAL
     Route: 048
  2. PRAVACHOL [Concomitant]
  3. GLUCOPHAGE [Concomitant]
  4. ATENOLOL [Concomitant]
  5. ASPIRIN [Concomitant]
  6. PLAVX (CLOPIDOGREL SULFATE) [Concomitant]

REACTIONS (2)
  - STENT PLACEMENT [None]
  - TRIPLE VESSEL BYPASS GRAFT [None]
